FAERS Safety Report 4321236-4 (Version None)
Quarter: 2004Q1

REPORT INFORMATION
  Report Type: 
  Country: None (occurrence: None)
  Receive Date: 20040322
  Receipt Date: 20040322
  Transmission Date: 20041129
  Serious: Yes (Death, Hospitalization)
  Sender: FDA-Public Use
  Company Number: None

PATIENT
  Age: 35 Year
  Sex: Female

DRUGS (2)
  1. DECADRON [Suspect]
     Indication: METASTASES TO CENTRAL NERVOUS SYSTEM
     Dosage: 8MG AM-4MG PM PO DOSES CHANGED
     Route: 048
     Dates: start: 20020704
  2. DEXMETHYLPHENIDATE [Suspect]
     Dosage: 5MG 3 BID
     Dates: start: 20020715

REACTIONS (16)
  - ANAEMIA [None]
  - BODY TEMPERATURE INCREASED [None]
  - CHEST X-RAY ABNORMAL [None]
  - COMA [None]
  - COUGH [None]
  - DECREASED APPETITE [None]
  - DYSPNOEA [None]
  - FUNGAL INFECTION [None]
  - LACTOBACILLUS INFECTION [None]
  - MENTAL STATUS CHANGES [None]
  - NEUTROPENIA [None]
  - OXYGEN SATURATION DECREASED [None]
  - PNEUMOCYSTIS CARINII PNEUMONIA [None]
  - STAPHYLOCOCCAL INFECTION [None]
  - THROMBOCYTOPENIA [None]
  - VIRAL INFECTION [None]
